FAERS Safety Report 23414884 (Version 1)
Quarter: 2024Q1

REPORT INFORMATION
  Report Type: Other
  Country: US (occurrence: None)
  Receive Date: 20240118
  Receipt Date: 20240118
  Transmission Date: 20240410
  Serious: Yes (Hospitalization)
  Sender: FDA-Public Use
  Company Number: US-ROCHE-3490977

PATIENT
  Age: 71 Year
  Sex: Male

DRUGS (1)
  1. HEMLIBRA [Suspect]
     Active Substance: EMICIZUMAB-KXWH
     Indication: Acquired haemophilia
     Dosage: INJECT 120MG (0.8ML) SUBCUTANEOUSLY EVERY WEEK
     Route: 058

REACTIONS (3)
  - Pyrexia [Unknown]
  - Abdominal pain upper [Unknown]
  - Off label use [Unknown]
